FAERS Safety Report 12115205 (Version 2)
Quarter: 2016Q1

REPORT INFORMATION
  Report Type: Spontaneous
  Country: NO (occurrence: NO)
  Receive Date: 20160225
  Receipt Date: 20160314
  Transmission Date: 20160526
  Serious: Yes (Other)
  Sender: FDA-Public Use
  Company Number: NO-SUNOVION-2016SUN000442

PATIENT
  Age: 21 Year
  Sex: Male

DRUGS (2)
  1. SERETIDE [Concomitant]
     Active Substance: FLUTICASONE FUROATE\SALMETEROL XINAFOATE
     Dosage: UNK
  2. ALVESCO [Suspect]
     Active Substance: CICLESONIDE
     Indication: PRODUCT USED FOR UNKNOWN INDICATION
     Dosage: UNK
     Route: 055
     Dates: start: 2015

REACTIONS (4)
  - General physical health deterioration [Unknown]
  - Impaired work ability [Unknown]
  - Nausea [Unknown]
  - Abdominal pain [Unknown]
